FAERS Safety Report 12254552 (Version 3)
Quarter: 2016Q2

REPORT INFORMATION
  Report Type: Spontaneous
  Country: US (occurrence: US)
  Receive Date: 20160411
  Receipt Date: 20160505
  Transmission Date: 20160815
  Serious: Yes (Other)
  Sender: FDA-Public Use
  Company Number: US-TEVA-650360ACC

PATIENT
  Sex: Female

DRUGS (1)
  1. PARAGARD T 380A [Suspect]
     Active Substance: COPPER
     Indication: CONTRACEPTION
     Dates: start: 20080808

REACTIONS (22)
  - Haemorrhage [Recovered/Resolved]
  - Embedded device [Recovered/Resolved]
  - Device expulsion [Unknown]
  - Menstruation irregular [Unknown]
  - Vaginal odour [Unknown]
  - Device breakage [Recovered/Resolved]
  - Micturition urgency [Unknown]
  - Vaginal discharge [Unknown]
  - Anxiety [Unknown]
  - Hot flush [Unknown]
  - Depression [Unknown]
  - Blood pressure increased [Unknown]
  - Pelvic pain [Unknown]
  - Dysmenorrhoea [Unknown]
  - Uterine perforation [Recovered/Resolved]
  - Urinary incontinence [Unknown]
  - Dysfunctional uterine bleeding [Unknown]
  - Insomnia [Unknown]
  - Device dislocation [Recovered/Resolved]
  - Back pain [Unknown]
  - Weight increased [Unknown]
  - Pollakiuria [Unknown]
